FAERS Safety Report 17023916 (Version 1)
Quarter: 2019Q4

REPORT INFORMATION
  Report Type: Spontaneous
  Country: US (occurrence: US)
  Receive Date: 20191113
  Receipt Date: 20191113
  Transmission Date: 20200122
  Serious: No
  Sender: FDA-Public Use
  Company Number: NVSC2019US032443

PATIENT
  Age: 9 Year
  Sex: Female

DRUGS (3)
  1. PREDNISOLONE. [Suspect]
     Active Substance: PREDNISOLONE
     Indication: XANTHOMA
     Dosage: 40 MG/M2, QD (GIVEN IN 3 DAYS FOR 4 WEEKS)
     Route: 065
  2. VINBLASTINE [Suspect]
     Active Substance: VINBLASTINE
     Indication: XANTHOMA
     Dosage: 6 MG/M2, QW (DOSE ON THE FIRST DAY OF EACH OF THE 6 WEEKS)
     Route: 065
  3. PREDNISOLONE. [Suspect]
     Active Substance: PREDNISOLONE
     Dosage: UNK (TAPERED OVER 2 WEEKS)
     Route: 065

REACTIONS (1)
  - Drug ineffective [Unknown]
